FAERS Safety Report 8835455 (Version 2)
Quarter: 2013Q3

REPORT INFORMATION
  Report Type: Spontaneous
  Country: US (occurrence: US)
  Receive Date: 20121011
  Receipt Date: 20130711
  Transmission Date: 20140515
  Serious: Yes (Other)
  Sender: FDA-Public Use
  Company Number: US-PFIZER INC-2012252721

PATIENT
  Age: 57 Year
  Sex: Female
  Weight: 94.33 kg

DRUGS (8)
  1. CHANTIX [Suspect]
     Indication: SMOKING CESSATION THERAPY
     Dosage: 0.5 MG, 1X/DAY
     Route: 048
  2. CHANTIX [Suspect]
     Dosage: UNK
     Route: 048
     Dates: end: 2009
  3. CHANTIX [Suspect]
     Dosage: 0.5 MG, 1X/DAY
     Route: 048
  4. CHANTIX [Suspect]
     Dosage: UNK
     Route: 048
     Dates: end: 2012
  5. FENTANYL [Concomitant]
     Indication: SPINAL OSTEOARTHRITIS
     Dosage: 50 UG, UNK
  6. METFORMIN [Concomitant]
     Indication: DIABETES MELLITUS
     Dosage: 500 MG TWO TABLETS IN THE MORNING AND THREE TABLETS AT NIGHT, 2X/DAY
  7. PREDNISONE [Concomitant]
     Dosage: UNK
  8. OXYCODONE [Concomitant]
     Indication: SPINAL OSTEOARTHRITIS
     Dosage: 10 MG, UNK

REACTIONS (2)
  - Cardiac disorder [Unknown]
  - Abnormal dreams [Recovered/Resolved]
